FAERS Safety Report 5284689-3 (Version None)
Quarter: 2007Q1

REPORT INFORMATION
  Report Type: 
  Country: None (occurrence: None)
  Receive Date: 20061229
  Receipt Date: 20060501
  Transmission Date: 20070707
  Serious: Yes (Hospitalization, Other)
  Sender: FDA-Public Use
  Company Number: PHEH2005US11306

PATIENT
  Age: 55 Year
  Sex: Female
  Weight: 107 kg

DRUGS (10)
  1. CLOZARIL [Suspect]
     Indication: SCHIZOPHRENIA
     Dosage: 100MG BID, 300MG, QHS, ORAL
     Route: 048
     Dates: start: 19950101, end: 20051007
  2. CLOZARIL [Suspect]
     Indication: SCHIZOPHRENIA
     Dosage: 100MG BID, 300MG, QHS, ORAL
     Route: 048
     Dates: start: 20051130
  3. ACETAZOLAMIDE [Concomitant]
  4. SERTRALINE [Concomitant]
  5. CLONAZEPAM [Concomitant]
  6. VALSARTAN [Concomitant]
  7. GLIMEPIRIDE [Concomitant]
  8. GLUCOPHAGE [Concomitant]
  9. TIOTROPIUM (TIOTROPIUM) [Concomitant]
  10. ALBUTEROL [Concomitant]

REACTIONS (5)
  - CARDIAC DISORDER [None]
  - CARDIAC FAILURE CONGESTIVE [None]
  - CARDIOMEGALY [None]
  - PERICARDIAL EFFUSION [None]
  - PERICARDITIS [None]
